FAERS Safety Report 22980342 (Version 2)
Quarter: 2024Q2

REPORT INFORMATION
  Report Type: Report from Study
  Country: US (occurrence: US)
  Receive Date: 20230925
  Receipt Date: 20240401
  Transmission Date: 20240716
  Serious: Yes (Hospitalization)
  Sender: FDA-Public Use
  Company Number: US-UCBSA-2023046113

PATIENT
  Sex: Female
  Weight: 88.435 kg

DRUGS (2)
  1. LACOSAMIDE [Suspect]
     Active Substance: LACOSAMIDE
     Indication: Seizure
     Dosage: 100 MILLIGRAM, 2X/DAY (BID)
     Dates: start: 202008
  2. LACOSAMIDE [Suspect]
     Active Substance: LACOSAMIDE
     Indication: Epilepsy

REACTIONS (2)
  - Complication associated with device [Recovered/Resolved with Sequelae]
  - Cardiac pacemaker replacement [Recovered/Resolved with Sequelae]

NARRATIVE: CASE EVENT DATE: 20230101
